FAERS Safety Report 14308339 (Version 5)
Quarter: 2020Q4

REPORT INFORMATION
  Report Type: Spontaneous
  Country: CH (occurrence: CH)
  Receive Date: 20171220
  Receipt Date: 20201023
  Transmission Date: 20210113
  Serious: Yes (Death, Other)
  Sender: FDA-Public Use
  Company Number: CH-BAYER-2017-239994

PATIENT
  Age: 51 Year
  Sex: Male

DRUGS (6)
  1. DILATREND [Concomitant]
     Active Substance: CARVEDILOL
     Indication: VARICES OESOPHAGEAL
     Dosage: 6.25 MG, QD
  2. MAGNESIUM DIASPORAL [MAGNESIUM CITRATE] [Concomitant]
     Dosage: 100 MG, QD
  3. TOREM [TORASEMIDE] [Concomitant]
     Active Substance: TORSEMIDE
     Dosage: 5 MG, QD
  4. STIVARGA [Suspect]
     Active Substance: REGORAFENIB
     Indication: HEPATOCELLULAR CARCINOMA
     Dosage: FIRST DELIVERY DATE
     Route: 048
     Dates: start: 20170609
  5. FLATULEX [Concomitant]
     Active Substance: ACTIVATED CHARCOAL\DIMETHICONE
     Dosage: 20 GTT, PRN
  6. CARVEDILOL. [Concomitant]
     Active Substance: CARVEDILOL
     Dosage: 12.5 MG, UNK
     Dates: start: 20170607

REACTIONS (12)
  - Asthenia [None]
  - Haemoglobin decreased [Fatal]
  - Shock haemorrhagic [Fatal]
  - Ascites [None]
  - Oedema peripheral [None]
  - Abdominal pain upper [Fatal]
  - General physical health deterioration [Fatal]
  - Diarrhoea [None]
  - Ocular icterus [None]
  - Off label use [None]
  - Fatigue [None]
  - Product use in unapproved indication [None]

NARRATIVE: CASE EVENT DATE: 201706
